FAERS Safety Report 16999415 (Version 13)
Quarter: 2022Q1

REPORT INFORMATION
  Report Type: Spontaneous
  Country: US (occurrence: US)
  Receive Date: 20191106
  Receipt Date: 20220107
  Transmission Date: 20220423
  Serious: No
  Sender: FDA-Public Use
  Company Number: US-PFIZER INC-2019193266

PATIENT
  Age: 78 Year
  Sex: Female
  Weight: 88.45 kg

DRUGS (4)
  1. LYRICA [Suspect]
     Active Substance: PREGABALIN
     Indication: Neuralgia
     Dosage: 150 MG, TWICE DAILY
     Route: 048
     Dates: start: 20190418
  2. LYRICA [Suspect]
     Active Substance: PREGABALIN
     Indication: Lumbar spinal stenosis
     Dosage: 75 MG, THRICE DAILY
     Route: 048
  3. LYRICA [Suspect]
     Active Substance: PREGABALIN
     Indication: Back pain
     Dosage: 75 MG, 3X/DAY
     Route: 048
     Dates: start: 20200225
  4. LYRICA [Suspect]
     Active Substance: PREGABALIN
     Indication: Polyneuropathy idiopathic progressive
     Dosage: 150 MG, 2X/DAY (TAKE 1 CAPSULE (150 MG) BY MOUTH 2 TIMES A DAY )
     Route: 048
     Dates: start: 20201007

REACTIONS (8)
  - Headache [Unknown]
  - Malaise [Unknown]
  - Hypoacusis [Unknown]
  - Weight increased [Not Recovered/Not Resolved]
  - Increased appetite [Not Recovered/Not Resolved]
  - Hunger [Not Recovered/Not Resolved]
  - Fatigue [Unknown]
  - Anxiety [Unknown]
